FAERS Safety Report 19179020 (Version 1)
Quarter: 2021Q2

REPORT INFORMATION
  Report Type: Spontaneous
  Country: HR (occurrence: HR)
  Receive Date: 20210426
  Receipt Date: 20210426
  Transmission Date: 20210717
  Serious: Yes (Other)
  Sender: FDA-Public Use
  Company Number: NVSC2021HR088034

PATIENT
  Age: 51 Year
  Sex: Female

DRUGS (3)
  1. PEMETREXED DISODIUM [Suspect]
     Active Substance: PEMETREXED DISODIUM
     Indication: LUNG ADENOCARCINOMA
     Dosage: UNK UNK, CYCLIC
     Route: 065
     Dates: start: 202003, end: 202009
  2. CARBOPLATIN. [Suspect]
     Active Substance: CARBOPLATIN
     Indication: LUNG ADENOCARCINOMA
     Dosage: UNK UNK, CYCLIC
     Route: 065
     Dates: start: 202003, end: 2020
  3. KEYTRUDA [Suspect]
     Active Substance: PEMBROLIZUMAB
     Indication: LUNG ADENOCARCINOMA
     Dosage: UNK, CYCLIC
     Route: 065
     Dates: start: 202003

REACTIONS (8)
  - Drug hypersensitivity [Unknown]
  - Hepatotoxicity [Unknown]
  - Pruritus [Unknown]
  - Blood thyroid stimulating hormone increased [Unknown]
  - Therapy partial responder [Unknown]
  - Nausea [Unknown]
  - Rash [Unknown]
  - Malignant neoplasm progression [Unknown]

NARRATIVE: CASE EVENT DATE: 2020
